FAERS Safety Report 22800119 (Version 2)
Quarter: 2025Q1

REPORT INFORMATION
  Report Type: Report from Study
  Country: US (occurrence: US)
  Receive Date: 20230808
  Receipt Date: 20250204
  Transmission Date: 20250408
  Serious: No
  Sender: KYOWA
  Company Number: US-KYOWAKIRIN-2023BKK012345

PATIENT

DRUGS (2)
  1. BUROSUMAB [Suspect]
     Active Substance: BUROSUMAB
     Indication: Hypophosphataemic osteomalacia
     Dosage: UNK UNK, 1X/MONTH (2 ML)
     Route: 058
     Dates: start: 202302
  2. BUROSUMAB [Suspect]
     Active Substance: BUROSUMAB
     Indication: Hypophosphataemic osteomalacia
     Dosage: UNK, 1X/4 WEEKS
     Route: 058

REACTIONS (2)
  - Constipation [Unknown]
  - Product dose omission issue [Unknown]
